FAERS Safety Report 4316571-X (Version None)
Quarter: 2004Q1

REPORT INFORMATION
  Report Type: 
  Country: None (occurrence: None)
  Receive Date: 20040312
  Receipt Date: 20040312
  Transmission Date: 20041129
  Serious: Yes (Disabling)
  Sender: FDA-Public Use
  Company Number: None

PATIENT
  Age: 74 Year
  Sex: Male
  Weight: 90.7194 kg

DRUGS (2)
  1. ZICAM [Suspect]
     Indication: NASOPHARYNGITIS
     Dosage: SPRAY EVERY 4 HR NASAL
     Route: 045
     Dates: start: 20031010, end: 20031012
  2. ZICAM [Suspect]
     Indication: PROPHYLAXIS
     Dosage: SPRAY EVERY 4 HR NASAL
     Route: 045
     Dates: start: 20031010, end: 20031012

REACTIONS (1)
  - ANOSMIA [None]
